FAERS Safety Report 23547928 (Version 1)
Quarter: 2024Q1

REPORT INFORMATION
  Report Type: Spontaneous
  Country: US (occurrence: None)
  Receive Date: 20240221
  Receipt Date: 20240221
  Transmission Date: 20240410
  Serious: No
  Sender: FDA-Public Use
  Company Number: 2024A031385

PATIENT
  Sex: Male

DRUGS (1)
  1. FASENRA [Suspect]
     Active Substance: BENRALIZUMAB
     Indication: Asthma
     Dosage: 30MG/ML EVERY FOUR WEEKS
     Route: 058
     Dates: start: 20230901, end: 20231101

REACTIONS (19)
  - Hypersensitivity [Unknown]
  - Sneezing [Unknown]
  - Cough [Unknown]
  - Rhinorrhoea [Unknown]
  - Nausea [Unknown]
  - Dysgeusia [Unknown]
  - Weight decreased [Unknown]
  - Pyrexia [Unknown]
  - Arthralgia [Unknown]
  - Wheezing [Unknown]
  - Headache [Unknown]
  - Sputum discoloured [Unknown]
  - Vocal cord inflammation [Unknown]
  - Infection [Unknown]
  - Malaise [Unknown]
  - Condition aggravated [Unknown]
  - Ill-defined disorder [Unknown]
  - Stress [Unknown]
  - Dyspnoea [Unknown]
